FAERS Safety Report 12132591 (Version 1)
Quarter: 2016Q1

REPORT INFORMATION
  Report Type: Spontaneous
  Country: US (occurrence: US)
  Receive Date: 20160301
  Receipt Date: 20160301
  Transmission Date: 20160526
  Serious: No
  Sender: FDA-Public Use
  Company Number: US-009507513-1602USA012866

PATIENT
  Age: 53 Year
  Sex: Female

DRUGS (1)
  1. DULERA [Suspect]
     Active Substance: FORMOTEROL FUMARATE DIHYDRATE\MOMETASONE FUROATE
     Dosage: STRENGTH: 200/5 MCG, 2 PUFFS TWICE DAILY
     Route: 055
     Dates: start: 2014

REACTIONS (3)
  - Product container issue [Unknown]
  - Underdose [Unknown]
  - Cough [Unknown]

NARRATIVE: CASE EVENT DATE: 20160225
